FAERS Safety Report 24284121 (Version 4)
Quarter: 2024Q4

REPORT INFORMATION
  Report Type: Spontaneous
  Country: PT (occurrence: PT)
  Receive Date: 20240905
  Receipt Date: 20241026
  Transmission Date: 20250115
  Serious: Yes (Hospitalization, Other)
  Sender: AUROBINDO
  Company Number: PT-MYLANLABS-2024M1067263

PATIENT
  Age: 79 Year
  Sex: Female

DRUGS (4)
  1. AZITHROMYCIN [Suspect]
     Active Substance: AZITHROMYCIN
     Indication: Rhinorrhoea
     Dosage: UNK
     Route: 065
  2. AZITHROMYCIN [Suspect]
     Active Substance: AZITHROMYCIN
     Indication: Cough
  3. AZITHROMYCIN [Suspect]
     Active Substance: AZITHROMYCIN
     Indication: Rhinitis
  4. APIXABAN [Concomitant]
     Active Substance: APIXABAN
     Indication: Pulmonary embolism
     Dosage: UNK
     Route: 065

REACTIONS (9)
  - Thrombocytopenia [Recovering/Resolving]
  - Melaena [Recovering/Resolving]
  - Skin lesion [Unknown]
  - Blister [Recovering/Resolving]
  - Ecchymosis [Recovering/Resolving]
  - Gingival bleeding [Recovering/Resolving]
  - Gingival oedema [Recovering/Resolving]
  - Petechiae [Recovering/Resolving]
  - Drug hypersensitivity [Unknown]
